FAERS Safety Report 5670225-6 (Version None)
Quarter: 2008Q1

REPORT INFORMATION
  Report Type: 
  Country: None (occurrence: None)
  Receive Date: 20080314
  Receipt Date: 20080314
  Transmission Date: 20080703
  Serious: Yes (Hospitalization)
  Sender: FDA-Public Use
  Company Number: None

PATIENT
  Sex: Male

DRUGS (2)
  1. DEMEROL [Suspect]
     Indication: ENDOSCOPY
     Dosage: 50MG X1 DOSE IV
     Route: 042
     Dates: start: 20080201
  2. PROPOFOL [Concomitant]

REACTIONS (4)
  - AGITATION [None]
  - CONVULSION [None]
  - DYSPNOEA [None]
  - SYNCOPE VASOVAGAL [None]
